FAERS Safety Report 16242292 (Version 1)
Quarter: 2019Q2

REPORT INFORMATION
  Report Type: Spontaneous
  Country: BR (occurrence: BR)
  Receive Date: 20190426
  Receipt Date: 20190426
  Transmission Date: 20190711
  Serious: Yes (Other)
  Sender: FDA-Public Use
  Company Number: BR-ABBVIE-19P-020-2760054-00

PATIENT
  Sex: Female

DRUGS (1)
  1. DEPAKOTE ER [Suspect]
     Active Substance: DIVALPROEX SODIUM
     Indication: SEIZURE
     Dosage: TOOK 4 TABLETS (NOT CLARIFIED THE FREQUENCY)
     Route: 048

REACTIONS (9)
  - Asthenia [Unknown]
  - Hyperhidrosis [Unknown]
  - Somnolence [Unknown]
  - Delirium [Unknown]
  - Sleep terror [Unknown]
  - Vomiting [Unknown]
  - Fatigue [Unknown]
  - Depressed mood [Unknown]
  - Malaise [Unknown]
